FAERS Safety Report 20722812 (Version 1)
Quarter: 2022Q2

REPORT INFORMATION
  Report Type: Spontaneous
  Country: US (occurrence: US)
  Receive Date: 20220419
  Receipt Date: 20220419
  Transmission Date: 20220721
  Serious: No
  Sender: FDA-Public Use
  Company Number: US-JNJFOC-20220412456

PATIENT
  Age: 51 Year
  Sex: Female

DRUGS (3)
  1. TYLENOL [Suspect]
     Active Substance: ACETAMINOPHEN
     Indication: Headache
     Route: 065
     Dates: start: 20220329
  2. RINVOQ [Concomitant]
     Active Substance: UPADACITINIB
     Indication: Rheumatoid arthritis
     Dosage: DAILY DOSE ER (15 MG,1 IN 1 D)
     Route: 048
     Dates: end: 202112
  3. RINVOQ [Concomitant]
     Active Substance: UPADACITINIB
     Dosage: DAILY DOSE ER (15 MG,1 IN 1 D)
     Route: 048
     Dates: start: 202203

REACTIONS (1)
  - Somnolence [Unknown]

NARRATIVE: CASE EVENT DATE: 20220329
